FAERS Safety Report 9257590 (Version 2)
Quarter: 2013Q2

REPORT INFORMATION
  Report Type: Spontaneous
  Country: ZA (occurrence: ZA)
  Receive Date: 20130426
  Receipt Date: 20130528
  Transmission Date: 20140414
  Serious: Yes (Other)
  Sender: FDA-Public Use
  Company Number: ZA-PFIZER INC-2013127815

PATIENT
  Age: 44 Year
  Sex: Male

DRUGS (3)
  1. ZYVOXID [Suspect]
     Indication: WOUND INFECTION
     Dosage: 1200 MG, 2X/DAY
     Route: 048
     Dates: start: 201210
  2. NEXIUM [Concomitant]
     Dosage: 40 MG, 1X/DAY
     Route: 048
     Dates: start: 201210
  3. ORELOX [Concomitant]
     Dosage: 200 MG, 2X/DAY
     Route: 048
     Dates: start: 201210

REACTIONS (1)
  - Wound sepsis [Not Recovered/Not Resolved]
